FAERS Safety Report 8235371-1 (Version None)
Quarter: 2012Q1

REPORT INFORMATION
  Report Type: 
  Country: None (occurrence: None)
  Receive Date: 20120326
  Receipt Date: 20120322
  Transmission Date: 20120608
  Serious: Yes (Death, Other)
  Sender: FDA-Public Use
  Company Number: DK-PFIZER INC-2012020206

PATIENT
  Age: 38 Year
  Sex: Male
  Weight: 100 kg

DRUGS (3)
  1. VARENICLINE TARTRATE [Suspect]
     Indication: SMOKING CESSATION THERAPY
     Dates: start: 20091010, end: 20091211
  2. VARENICLINE TARTRATE [Suspect]
     Indication: DEEP VEIN THROMBOSIS
  3. WARFARIN SODIUM [Concomitant]
     Dosage: 8 X 2.5 MG

REACTIONS (13)
  - HAEMORRHAGE SUBCUTANEOUS [None]
  - HEPATIC STEATOSIS [None]
  - SKIN DISCOLOURATION [None]
  - DEATH [None]
  - SKIN HYPERTROPHY [None]
  - PSORIASIS [None]
  - ERYSIPELAS [None]
  - LARGE INTESTINAL HAEMORRHAGE [None]
  - THROMBOSIS [None]
  - DIARRHOEA [None]
  - FAECES DISCOLOURED [None]
  - ASPIRATION [None]
  - PERICARDIAL HAEMORRHAGE [None]
